FAERS Safety Report 23037717 (Version 1)
Quarter: 2023Q4

REPORT INFORMATION
  Report Type: Spontaneous
  Country: IT (occurrence: IT)
  Receive Date: 20231006
  Receipt Date: 20231006
  Transmission Date: 20240110
  Serious: Yes (Hospitalization, Other)
  Sender: FDA-Public Use
  Company Number: IT-SANDOZ-NVSC2023IT017244

PATIENT
  Age: 74 Year
  Sex: Female
  Weight: 63 kg

DRUGS (11)
  1. GEMCITABINE HYDROCHLORIDE [Suspect]
     Active Substance: GEMCITABINE HYDROCHLORIDE
     Indication: Ductal adenocarcinoma of pancreas
     Dosage: 1700 MG, OTHER
     Route: 042
     Dates: start: 20221215, end: 20230124
  2. GEMCITABINE HYDROCHLORIDE [Suspect]
     Active Substance: GEMCITABINE HYDROCHLORIDE
     Dosage: 1000 MG/M2, OTHER
     Route: 042
     Dates: start: 20230125
  3. PACLITAXEL [Suspect]
     Active Substance: PACLITAXEL
     Indication: Ductal adenocarcinoma of pancreas
     Dosage: 212 MG, OTHER
     Route: 042
     Dates: start: 20221215, end: 20230124
  4. PACLITAXEL [Suspect]
     Active Substance: PACLITAXEL
     Dosage: 125 MG/M2, QW
     Route: 042
     Dates: start: 20230125
  5. SPARTALIZUMAB [Suspect]
     Active Substance: SPARTALIZUMAB
     Indication: Ductal adenocarcinoma of pancreas
     Dosage: 400 MG, 4/W
     Route: 042
     Dates: start: 20221215, end: 20230124
  6. SPARTALIZUMAB [Suspect]
     Active Substance: SPARTALIZUMAB
     Dosage: 400 MG, 4/W
     Route: 042
     Dates: start: 20230115
  7. FENTANIL [FENTANYL CITRATE] [Concomitant]
     Indication: Pain
     Dosage: UNK
     Route: 065
     Dates: start: 2022
  8. DEXAMETHASONE [Concomitant]
     Active Substance: DEXAMETHASONE
     Indication: Chemotherapy side effect prophylaxis
     Dosage: UNK
     Dates: start: 20221215
  9. GRANISETRON [Concomitant]
     Active Substance: GRANISETRON
     Indication: Chemotherapy side effect prophylaxis
     Dosage: UNK
     Route: 065
     Dates: start: 20221215
  10. ESOMEPRAZOLE [Concomitant]
     Active Substance: ESOMEPRAZOLE
     Indication: Chemotherapy side effect prophylaxis
     Dosage: UNK
     Dates: start: 20221215
  11. MOVICOL [Concomitant]
     Active Substance: POLYETHYLENE GLYCOL 3350\POTASSIUM CHLORIDE\SODIUM BICARBONATE\SODIUM CHLORIDE
     Indication: Constipation
     Dosage: 2 U
     Route: 065
     Dates: start: 20221215

REACTIONS (1)
  - Infusion related reaction [Recovered/Resolved]

NARRATIVE: CASE EVENT DATE: 20230124
